FAERS Safety Report 25983271 (Version 1)
Quarter: 2025Q4

REPORT INFORMATION
  Report Type: Spontaneous
  Country: US (occurrence: US)
  Receive Date: 20251031
  Receipt Date: 20251031
  Transmission Date: 20260117
  Serious: Yes (Hospitalization)
  Sender: MYLAN
  Company Number: US-MYLANLABS-2025M1092309

PATIENT
  Age: 14 Year
  Sex: Male

DRUGS (12)
  1. RIFAMPIN [Suspect]
     Active Substance: RIFAMPIN
     Indication: Staphylococcal infection
     Dosage: 300 MILLIGRAM, BID (RECEIVED 4 DOSES)
  2. RIFAMPIN [Suspect]
     Active Substance: RIFAMPIN
     Dosage: 300 MILLIGRAM, BID (RECEIVED 4 DOSES)
     Route: 048
  3. RIFAMPIN [Suspect]
     Active Substance: RIFAMPIN
     Dosage: 300 MILLIGRAM, BID (RECEIVED 4 DOSES)
     Route: 048
  4. RIFAMPIN [Suspect]
     Active Substance: RIFAMPIN
     Dosage: 300 MILLIGRAM, BID (RECEIVED 4 DOSES)
  5. VANCOMYCIN [Concomitant]
     Active Substance: VANCOMYCIN
     Indication: Evidence based treatment
     Dosage: 500 MILLIGRAM
  6. VANCOMYCIN [Concomitant]
     Active Substance: VANCOMYCIN
     Indication: Staphylococcal infection
     Dosage: 500 MILLIGRAM
     Route: 042
  7. VANCOMYCIN [Concomitant]
     Active Substance: VANCOMYCIN
     Dosage: 500 MILLIGRAM
     Route: 042
  8. VANCOMYCIN [Concomitant]
     Active Substance: VANCOMYCIN
     Dosage: 500 MILLIGRAM
  9. VANCOMYCIN [Concomitant]
     Active Substance: VANCOMYCIN
     Indication: Evidence based treatment
     Dosage: UNK, VANCOMYCIN CATHETER LOCK THERAPY
  10. VANCOMYCIN [Concomitant]
     Active Substance: VANCOMYCIN
     Indication: Staphylococcal infection
     Dosage: UNK, VANCOMYCIN CATHETER LOCK THERAPY
     Route: 065
  11. VANCOMYCIN [Concomitant]
     Active Substance: VANCOMYCIN
     Dosage: UNK, VANCOMYCIN CATHETER LOCK THERAPY
     Route: 065
  12. VANCOMYCIN [Concomitant]
     Active Substance: VANCOMYCIN
     Dosage: UNK, VANCOMYCIN CATHETER LOCK THERAPY

REACTIONS (2)
  - Clonus [Recovered/Resolved]
  - Ataxia [Recovered/Resolved]
